FAERS Safety Report 10810186 (Version 2)
Quarter: 2016Q1

REPORT INFORMATION
  Report Type: Report from Study
  Country: US (occurrence: US)
  Receive Date: 20150217
  Receipt Date: 20160125
  Transmission Date: 20160525
  Serious: No
  Sender: FDA-Public Use
  Company Number: US-ABBVIE-14K-163-1225395-00

PATIENT
  Age: 62 Year
  Sex: Female
  Weight: 65.83 kg

DRUGS (4)
  1. HUMIRA [Suspect]
     Active Substance: ADALIMUMAB
     Route: 058
  2. COLESTIPOL [Concomitant]
     Active Substance: COLESTIPOL
     Indication: DIARRHOEA
  3. HUMIRA [Suspect]
     Active Substance: ADALIMUMAB
     Indication: CROHN^S DISEASE
     Route: 058
     Dates: start: 20140307, end: 20140321
  4. SYNTHROID [Concomitant]
     Active Substance: LEVOTHYROXINE SODIUM
     Indication: HYPOTHYROIDISM

REACTIONS (9)
  - Psoriasis [Recovered/Resolved]
  - Oral infection [Not Recovered/Not Resolved]
  - Cyst [Not Recovered/Not Resolved]
  - Herpes zoster [Recovered/Resolved]
  - Rash [Recovered/Resolved]
  - Pityriasis [Recovered/Resolved]
  - Alopecia [Recovered/Resolved]
  - Oral mucosal erythema [Not Recovered/Not Resolved]
  - Stress [Unknown]

NARRATIVE: CASE EVENT DATE: 2014
